FAERS Safety Report 21246998 (Version 1)
Quarter: 2022Q3

REPORT INFORMATION
  Report Type: Spontaneous
  Country: US (occurrence: None)
  Receive Date: 20220823
  Receipt Date: 20220823
  Transmission Date: 20221027
  Serious: Yes (Hospitalization, Other)
  Sender: FDA-Public Use
  Company Number: None

PATIENT
  Age: 43 Year
  Sex: Female
  Weight: 58.5 kg

DRUGS (8)
  1. STELARA [Suspect]
     Active Substance: USTEKINUMAB
     Indication: Psoriasis
     Dosage: OTHER FREQUENCY : Q12WEEKS;?
     Route: 058
     Dates: start: 20220419
  2. FOLIC ACID [Concomitant]
     Active Substance: FOLIC ACID
  3. HYDROCODONE/ACETAMINOPHEN [Concomitant]
  4. LORAZEPAM [Concomitant]
  5. MESALAMINE [Concomitant]
  6. PREDNISONE [Concomitant]
     Active Substance: PREDNISONE
  7. ROBAXIN [Concomitant]
  8. VITAMIN D [Concomitant]
     Active Substance: VITAMIN D NOS

REACTIONS (3)
  - Fall [None]
  - Hip fracture [None]
  - Clavicle fracture [None]

NARRATIVE: CASE EVENT DATE: 20220706
